FAERS Safety Report 12789693 (Version 2)
Quarter: 2016Q4

REPORT INFORMATION
  Report Type: Report from Study
  Country: US (occurrence: US)
  Receive Date: 20160928
  Receipt Date: 20161028
  Transmission Date: 20170207
  Serious: Yes (Death, Hospitalization, Other)
  Sender: FDA-Public Use
  Company Number: US-JNJFOC-20160527323

PATIENT
  Age: 87 Year
  Sex: Female

DRUGS (1)
  1. IMBRUVICA [Suspect]
     Active Substance: IBRUTINIB
     Indication: CHRONIC LYMPHOCYTIC LEUKAEMIA
     Route: 048
     Dates: start: 20150918, end: 20160519

REACTIONS (5)
  - Seizure [Unknown]
  - Respiratory failure [Fatal]
  - Lung neoplasm malignant [Not Recovered/Not Resolved]
  - Pneumonia [Fatal]
  - Sepsis [Unknown]

NARRATIVE: CASE EVENT DATE: 20160520
